FAERS Safety Report 22387604 (Version 1)
Quarter: 2023Q2

REPORT INFORMATION
  Report Type: Spontaneous
  Country: US (occurrence: US)
  Receive Date: 20230531
  Receipt Date: 20230531
  Transmission Date: 20230722
  Serious: No
  Sender: FDA-Public Use
  Company Number: US-AMGEN-USASP2023093138

PATIENT
  Sex: Female

DRUGS (1)
  1. REPATHA [Suspect]
     Active Substance: EVOLOCUMAB
     Indication: Blood cholesterol increased
     Dosage: UNK
     Route: 065
     Dates: start: 20230519

REACTIONS (5)
  - Back pain [Unknown]
  - Asthenia [Unknown]
  - Paraesthesia oral [Unknown]
  - Rhinorrhoea [Unknown]
  - Nausea [Recovered/Resolved]
